FAERS Safety Report 4873014-5 (Version None)
Quarter: 2006Q1

REPORT INFORMATION
  Report Type: 
  Country: None (occurrence: None)
  Receive Date: 20060105
  Receipt Date: 20051228
  Transmission Date: 20060701
  Serious: Yes (Other)
  Sender: FDA-Public Use
  Company Number: US-JNJFOC-20051205943

PATIENT
  Sex: Male

DRUGS (1)
  1. NATRECOR [Suspect]
     Indication: DRUG USE FOR UNKNOWN INDICATION
     Dosage: ONE 1.5 MG VIAL ADDED TO 5 ML SOLUTION AND IV PUSHED OVER APPROXIMATELY 1 MINUTE.
     Route: 042

REACTIONS (2)
  - BLOOD PRESSURE DECREASED [None]
  - MEDICATION ERROR [None]
